FAERS Safety Report 19488659 (Version 1)
Quarter: 2021Q3

REPORT INFORMATION
  Report Type: Spontaneous
  Country: GB (occurrence: GB)
  Receive Date: 20210703
  Receipt Date: 20210703
  Transmission Date: 20211014
  Serious: Yes (Disabling)
  Sender: FDA-Public Use
  Company Number: GB-DRREDDYS-SPO/UKI/21/0137150

PATIENT
  Age: 23 Year
  Sex: Female
  Weight: 64.5 kg

DRUGS (4)
  1. NORIDAY [Concomitant]
     Active Substance: MESTRANOL\NORETHINDRONE
     Indication: ILL-DEFINED DISORDER
  2. FEXOFENADINE HYDROCHLORIDE 120MG FILM?COATED TABLETS, DR. REDDY^S [Suspect]
     Active Substance: FEXOFENADINE HYDROCHLORIDE
     Indication: SEASONAL ALLERGY
     Route: 048
     Dates: start: 20210611, end: 20210616
  3. SALBUTAMOL [Concomitant]
     Active Substance: ALBUTEROL
     Indication: ILL-DEFINED DISORDER
  4. FOSTAIR [Concomitant]
     Active Substance: BECLOMETHASONE\FORMOTEROL
     Indication: ILL-DEFINED DISORDER

REACTIONS (4)
  - Anxiety [Not Recovered/Not Resolved]
  - Depression suicidal [Recovering/Resolving]
  - Feeling jittery [Not Recovered/Not Resolved]
  - Discomfort [Not Recovered/Not Resolved]

NARRATIVE: CASE EVENT DATE: 20210614
